FAERS Safety Report 15844449 (Version 3)
Quarter: 2019Q2

REPORT INFORMATION
  Report Type: Report from Study
  Country: CA (occurrence: CA)
  Receive Date: 20190118
  Receipt Date: 20190523
  Transmission Date: 20190711
  Serious: Yes (Hospitalization)
  Sender: FDA-Public Use
  Company Number: CA-ACTELION-A-US2019-184748

PATIENT
  Age: 66 Year
  Sex: Female
  Weight: 65.76 kg

DRUGS (7)
  1. OPSUMIT [Suspect]
     Active Substance: MACITENTAN
     Dosage: 10 UNK, UNK
     Route: 048
     Dates: start: 20190104, end: 201902
  2. GLUCOSAMINE [Concomitant]
     Active Substance: GLUCOSAMINE
  3. ADCIRCA [Concomitant]
     Active Substance: TADALAFIL
  4. ENALAPRIL [Concomitant]
     Active Substance: ENALAPRIL
  5. CALCIUM + MAGNESIUM [Concomitant]
  6. TYLENOL [Concomitant]
     Active Substance: ACETAMINOPHEN
     Dosage: UNK, PRN
  7. OPSUMIT [Suspect]
     Active Substance: MACITENTAN
     Indication: PULMONARY ARTERIAL HYPERTENSION
     Dosage: 10 MG, UNK
     Route: 048
     Dates: start: 20171207, end: 20181219

REACTIONS (3)
  - Hepatic enzyme increased [Unknown]
  - Drug intolerance [Unknown]
  - Liver disorder [Recovered/Resolved]

NARRATIVE: CASE EVENT DATE: 20181218
